FAERS Safety Report 22137277 (Version 2)
Quarter: 2023Q2

REPORT INFORMATION
  Report Type: Spontaneous
  Country: IT (occurrence: IT)
  Receive Date: 20230325
  Receipt Date: 20230430
  Transmission Date: 20230722
  Serious: Yes (Other)
  Sender: FDA-Public Use
  Company Number: IT-AMGEN-ITASP2023039170

PATIENT
  Age: 76 Year
  Sex: Female

DRUGS (21)
  1. OXALIPLATIN [Suspect]
     Active Substance: OXALIPLATIN
     Indication: Colorectal cancer metastatic
     Dosage: UNK (6 CYCLES ADMINISTERED)
     Route: 065
     Dates: start: 201701
  2. OXALIPLATIN [Suspect]
     Active Substance: OXALIPLATIN
     Indication: Metastases to pleura
  3. OXALIPLATIN [Suspect]
     Active Substance: OXALIPLATIN
     Indication: Adenocarcinoma of colon
  4. OXALIPLATIN [Suspect]
     Active Substance: OXALIPLATIN
     Indication: Metastases to skin
  5. OXALIPLATIN [Suspect]
     Active Substance: OXALIPLATIN
     Indication: Metastases to lymph nodes
  6. OXALIPLATIN [Suspect]
     Active Substance: OXALIPLATIN
     Indication: Colorectal cancer metastatic
  7. LEUCOVORIN [Suspect]
     Active Substance: LEUCOVORIN
     Indication: Metastases to pleura
     Dosage: 6 CYCLES ADMINISTERED
     Route: 065
     Dates: start: 201701, end: 2017
  8. LEUCOVORIN [Suspect]
     Active Substance: LEUCOVORIN
     Indication: Adenocarcinoma of colon
  9. LEUCOVORIN [Suspect]
     Active Substance: LEUCOVORIN
     Indication: Colorectal cancer metastatic
  10. LEUCOVORIN [Suspect]
     Active Substance: LEUCOVORIN
     Indication: Metastases to skin
  11. LEUCOVORIN [Suspect]
     Active Substance: LEUCOVORIN
     Indication: Metastases to lymph nodes
  12. FLUOROURACIL [Suspect]
     Active Substance: FLUOROURACIL
     Indication: Metastases to lymph nodes
     Dosage: UNK (6 CYCLES ADMINISTERED)
     Route: 065
     Dates: start: 201701, end: 2017
  13. FLUOROURACIL [Suspect]
     Active Substance: FLUOROURACIL
     Indication: Adenocarcinoma of colon
  14. FLUOROURACIL [Suspect]
     Active Substance: FLUOROURACIL
     Indication: Metastases to pleura
  15. FLUOROURACIL [Suspect]
     Active Substance: FLUOROURACIL
     Indication: Metastases to skin
  16. FLUOROURACIL [Suspect]
     Active Substance: FLUOROURACIL
     Indication: Colorectal cancer metastatic
  17. PANITUMUMAB [Suspect]
     Active Substance: PANITUMUMAB
     Indication: Adenocarcinoma of colon
     Dosage: UNK (6 CYCLES ADMINISTERED)
     Route: 065
     Dates: start: 201701
  18. PANITUMUMAB [Suspect]
     Active Substance: PANITUMUMAB
     Indication: Metastases to pleura
  19. PANITUMUMAB [Suspect]
     Active Substance: PANITUMUMAB
     Indication: Metastases to skin
  20. PANITUMUMAB [Suspect]
     Active Substance: PANITUMUMAB
     Indication: Metastases to lymph nodes
  21. PANITUMUMAB [Suspect]
     Active Substance: PANITUMUMAB
     Indication: Colorectal cancer metastatic

REACTIONS (8)
  - Neutropenia [Unknown]
  - Neuropathy peripheral [Unknown]
  - Colorectal cancer metastatic [Unknown]
  - Rash [Unknown]
  - Therapy partial responder [Unknown]
  - Conjunctivitis [Unknown]
  - Ocular toxicity [Unknown]
  - Drug resistance [Unknown]

NARRATIVE: CASE EVENT DATE: 20170101
